FAERS Safety Report 13807426 (Version 3)
Quarter: 2017Q4

REPORT INFORMATION
  Report Type: Spontaneous
  Country: US (occurrence: US)
  Receive Date: 20170728
  Receipt Date: 20171031
  Transmission Date: 20180320
  Serious: Yes (Hospitalization)
  Sender: FDA-Public Use
  Company Number: US-VIFOR (INTERNATIONAL) INC.-VIT-2017-08023

PATIENT
  Sex: Female
  Weight: 59.93 kg

DRUGS (10)
  1. METHYL FOLATE [Concomitant]
  2. GRAPE SEED [Concomitant]
     Active Substance: HERBALS\VITIS VINIFERA SEED
  3. ERGOCALCIFEROL. [Concomitant]
     Active Substance: ERGOCALCIFEROL
  4. ASCORBIC ACID. [Concomitant]
     Active Substance: ASCORBIC ACID
  5. VELTASSA [Suspect]
     Active Substance: PATIROMER
     Indication: HYPERKALAEMIA
     Route: 048
     Dates: start: 20170222, end: 2017
  6. GABAPENTIN. [Concomitant]
     Active Substance: GABAPENTIN
  7. VITAMIN B COMPLEX [Concomitant]
     Active Substance: CYANOCOBALAMIN\DEXPANTHENOL\NIACINAMIDE\PYRIDOXINE HYDROCHLORIDE\RIBOFLAVIN 5^-PHOSPHATE SODIUM\THIAMINE HYDROCHLORIDE\VITAMIN B COMPLEX
  8. TORASEMIDE [Concomitant]
     Active Substance: TORSEMIDE
  9. OMEGA 3 [Concomitant]
     Active Substance: OMEGA-3 FATTY ACIDS
  10. LOSARTAN POTASSIUM. [Concomitant]
     Active Substance: LOSARTAN POTASSIUM

REACTIONS (13)
  - Hypercalcaemia [Recovering/Resolving]
  - Rehabilitation therapy [Unknown]
  - Cardiac pacemaker insertion [Unknown]
  - Parathyroid tumour [Recovering/Resolving]
  - Liver disorder [Recovering/Resolving]
  - Dyspnoea [Recovering/Resolving]
  - Eating disorder [Recovering/Resolving]
  - Heart rate decreased [Recovering/Resolving]
  - Nausea [Recovering/Resolving]
  - Dehydration [Unknown]
  - Hypertension [Unknown]
  - Weight decreased [Recovering/Resolving]
  - Pleural effusion [Recovering/Resolving]

NARRATIVE: CASE EVENT DATE: 2017
